FAERS Safety Report 6446184-5 (Version None)
Quarter: 2009Q4

REPORT INFORMATION
  Report Type: 
  Country: None (occurrence: None)
  Receive Date: 20091119
  Receipt Date: 20091109
  Transmission Date: 20100525
  Serious: Yes (Other)
  Sender: FDA-Public Use
  Company Number: US-JNJFOC-20091102840

PATIENT
  Sex: Female

DRUGS (1)
  1. INVEGA [Suspect]
     Indication: PSYCHOTIC DISORDER
     Route: 048

REACTIONS (9)
  - BACK PAIN [None]
  - BLOOD GROWTH HORMONE INCREASED [None]
  - BODY HEIGHT INCREASED [None]
  - BRAIN NEOPLASM [None]
  - HYPOTHALAMO-PITUITARY DISORDER [None]
  - INTERVERTEBRAL DISC PROTRUSION [None]
  - PAIN IN EXTREMITY [None]
  - VISUAL IMPAIRMENT [None]
  - WEIGHT INCREASED [None]
